FAERS Safety Report 17834515 (Version 2)
Quarter: 2020Q3

REPORT INFORMATION
  Report Type: Spontaneous
  Country: US (occurrence: US)
  Receive Date: 20200528
  Receipt Date: 20200817
  Transmission Date: 20201103
  Serious: Yes (Other)
  Sender: FDA-Public Use
  Company Number: US-PFIZER INC-2020209229

PATIENT
  Age: 53 Year
  Sex: Female

DRUGS (1)
  1. XELJANZ XR [Suspect]
     Active Substance: TOFACITINIB CITRATE
     Indication: RHEUMATOID ARTHRITIS
     Dosage: 11 MG, DAILY
     Route: 048
     Dates: start: 201909

REACTIONS (8)
  - Ear pain [Unknown]
  - Arthralgia [Unknown]
  - Depressed mood [Recovered/Resolved]
  - Polychondritis [Unknown]
  - Feeling abnormal [Recovered/Resolved]
  - Systemic lupus erythematosus [Recovering/Resolving]
  - Inappropriate schedule of product administration [Unknown]
  - Pre-existing condition improved [Unknown]

NARRATIVE: CASE EVENT DATE: 201909
